FAERS Safety Report 25462805 (Version 3)
Quarter: 2025Q3

REPORT INFORMATION
  Report Type: Spontaneous
  Country: JP (occurrence: JP)
  Receive Date: 20250620
  Receipt Date: 20250707
  Transmission Date: 20251021
  Serious: No
  Sender: NOVARTIS
  Company Number: JP-MLMSERVICE-20250609-PI539426-00336-1

PATIENT
  Age: 51 Year
  Sex: Female

DRUGS (2)
  1. ZOLEDRONIC ACID [Suspect]
     Active Substance: ZOLEDRONIC ACID
     Indication: Metastases to bone
     Dosage: QMO, THREE DOSES
     Route: 065
  2. DENOSUMAB [Suspect]
     Active Substance: DENOSUMAB
     Indication: Metastases to bone
     Route: 065

REACTIONS (1)
  - Drug ineffective [Unknown]
